FAERS Safety Report 4346893-8 (Version None)
Quarter: 2004Q1

REPORT INFORMATION
  Report Type: 
  Country: None (occurrence: None)
  Receive Date: 20040329
  Receipt Date: 20031222
  Transmission Date: 20041129
  Serious: No
  Sender: FDA-Public Use
  Company Number: USA031255236

PATIENT
  Age: 12 Year
  Sex: Female
  Weight: 63 kg

DRUGS (2)
  1. STRATTERA [Suspect]
     Indication: ATTENTION DEFICIT/HYPERACTIVITY DISORDER
     Dosage: 60 MG/DAY
     Dates: start: 20030801
  2. PAXIL [Concomitant]

REACTIONS (2)
  - AMENORRHOEA [None]
  - WEIGHT DECREASED [None]
